FAERS Safety Report 11167770 (Version 2)
Quarter: 2015Q4

REPORT INFORMATION
  Report Type: Spontaneous
  Country: US (occurrence: US)
  Receive Date: 20150605
  Receipt Date: 20151202
  Transmission Date: 20160304
  Serious: No
  Sender: FDA-Public Use
  Company Number: US-PFIZER INC-2015185576

PATIENT
  Age: 31 Year
  Sex: Male
  Weight: 104 kg

DRUGS (3)
  1. ALDACTONE [Suspect]
     Active Substance: SPIRONOLACTONE
     Indication: DIURETIC THERAPY
     Dosage: 50 MG, DAILY
     Route: 048
     Dates: start: 20131105
  2. ACTIGALL [Suspect]
     Active Substance: URSODIOL
     Indication: LIVER DISORDER
     Dosage: 300 MG, 3X/DAY
     Route: 048
  3. LASIX [Suspect]
     Active Substance: FUROSEMIDE
     Indication: DIURETIC THERAPY
     Dosage: 40 MG, DAILY
     Route: 048

REACTIONS (2)
  - Fluid retention [Unknown]
  - Condition aggravated [Unknown]
